FAERS Safety Report 20557612 (Version 1)
Quarter: 2022Q1

REPORT INFORMATION
  Report Type: Spontaneous
  Country: US (occurrence: None)
  Receive Date: 20220307
  Receipt Date: 20220307
  Transmission Date: 20220423
  Serious: Yes (Hospitalization)
  Sender: FDA-Public Use
  Company Number: US-ROCHE-3041837

PATIENT
  Sex: Female

DRUGS (1)
  1. ESBRIET [Suspect]
     Active Substance: PIRFENIDONE
     Indication: Idiopathic pulmonary fibrosis
     Dosage: DURING TITRATION OF ESBRIET WAS ON 2 PILLS THREE TIMES A DAY WITH MEALS THEN STOPPED.
     Route: 065
     Dates: start: 20220223

REACTIONS (1)
  - Pneumothorax [Unknown]
